FAERS Safety Report 9691195 (Version 1)
Quarter: 2013Q4

REPORT INFORMATION
  Report Type: Spontaneous
  Country: US (occurrence: US)
  Receive Date: 20131115
  Receipt Date: 20131115
  Transmission Date: 20140711
  Serious: Yes (Other)
  Sender: FDA-Public Use
  Company Number: US-MPIJNJ-2013MPI000882

PATIENT
  Age: 92 Year
  Sex: Female
  Weight: 61.68 kg

DRUGS (1)
  1. VELCADE [Suspect]
     Indication: PLASMA CELL MYELOMA
     Dosage: 2.1 MG, 1/WEEK
     Route: 042
     Dates: start: 20111121, end: 20120409

REACTIONS (1)
  - Bladder cancer [Unknown]
